FAERS Safety Report 12560880 (Version 1)
Quarter: 2016Q3

REPORT INFORMATION
  Report Type: Report from Study
  Country: NL (occurrence: NL)
  Receive Date: 20160715
  Receipt Date: 20160715
  Transmission Date: 20161109
  Serious: Yes (Hospitalization)
  Sender: FDA-Public Use
  Company Number: NL-IPSEN BIOPHARMACEUTICALS, INC.-2016-05979

PATIENT
  Age: 37 Year
  Sex: Female

DRUGS (5)
  1. SOMATULINE AUTOGEL [Suspect]
     Active Substance: LANREOTIDE ACETATE
     Indication: NEUROENDOCRINE TUMOUR
     Dosage: 120 MG
     Route: 058
     Dates: start: 20150126
  2. BUTRANS [Concomitant]
     Active Substance: BUPRENORPHINE
  3. ENALAPRIL [Concomitant]
     Active Substance: ENALAPRIL
  4. PARACETAMOL [Concomitant]
     Active Substance: ACETAMINOPHEN
  5. OXAZEPAM. [Concomitant]
     Active Substance: OXAZEPAM

REACTIONS (2)
  - Cholecystectomy [Unknown]
  - Malnutrition [Unknown]

NARRATIVE: CASE EVENT DATE: 20160704
